FAERS Safety Report 10082907 (Version 1)
Quarter: 2014Q2

REPORT INFORMATION
  Report Type: Report from Study
  Country: US (occurrence: US)
  Receive Date: 20140417
  Receipt Date: 20140417
  Transmission Date: 20141212
  Serious: Yes (Other)
  Sender: FDA-Public Use
  Company Number: US-ROCHE-1384039

PATIENT
  Sex: Female
  Weight: 56.75 kg

DRUGS (1)
  1. AVASTIN [Suspect]
     Indication: COLORECTAL CANCER
     Route: 042

REACTIONS (2)
  - Hypersensitivity [Recovered/Resolved]
  - Muscle spasms [Recovering/Resolving]
